FAERS Safety Report 18965042 (Version 1)
Quarter: 2021Q1

REPORT INFORMATION
  Report Type: Spontaneous
  Country: GB (occurrence: GB)
  Receive Date: 20210303
  Receipt Date: 20210303
  Transmission Date: 20210420
  Serious: Yes (Hospitalization, Other)
  Sender: FDA-Public Use
  Company Number: GB-ASTRAZENECA-2021A078836

PATIENT
  Age: 63 Year
  Sex: Female

DRUGS (15)
  1. ESOMEPRAZOLE. [Suspect]
     Active Substance: ESOMEPRAZOLE MAGNESIUM
     Route: 048
  2. FUROSEMIDE. [Suspect]
     Active Substance: FUROSEMIDE
     Indication: CARDIAC FAILURE CHRONIC
     Route: 048
  3. BISOPROLOL FUMARATE. [Concomitant]
     Active Substance: BISOPROLOL FUMARATE
     Dosage: 5
  4. EPLERENONE. [Concomitant]
     Active Substance: EPLERENONE
     Dosage: 0.5
  5. CLOPIDOGREL [Concomitant]
     Active Substance: CLOPIDOGREL BISULFATE
     Dosage: 75
  6. DIAZEPAM. [Concomitant]
     Active Substance: DIAZEPAM
     Dosage: 2
  7. DIAZEPAM. [Concomitant]
     Active Substance: DIAZEPAM
     Dosage: 5, AT NIGHT ONLY IF REQUIRED.
  8. ASPIRIN. [Concomitant]
     Active Substance: ASPIRIN
     Dosage: 75
  9. ATORVASTATIN [Concomitant]
     Active Substance: ATORVASTATIN
     Dosage: 40, AT NIGHT.
  10. GLYCERYL TRINITRATE [Concomitant]
     Active Substance: NITROGLYCERIN
     Dosage: 1?2 SPRAYS WHEN REQUIRED
     Route: 060
  11. AMITRIPTYLINE [Concomitant]
     Active Substance: AMITRIPTYLINE
     Dosage: 20, AT NIGHT.
  12. KLIOFEM [Concomitant]
     Active Substance: ESTRADIOL\NORETHINDRONE ACETATE
     Dosage: 1
  13. PRUCALOPRIDE [Concomitant]
     Active Substance: PRUCALOPRIDE
     Dosage: 1
  14. RAMIPRIL. [Concomitant]
     Active Substance: RAMIPRIL
     Dosage: 2.5
  15. ZOLPIDEM [Concomitant]
     Active Substance: ZOLPIDEM TARTRATE
     Dosage: 10, AT NIGHT.

REACTIONS (9)
  - Vitamin D deficiency [Unknown]
  - Decreased appetite [Unknown]
  - Confusional state [Unknown]
  - Muscle spasms [Unknown]
  - Hypomagnesaemia [Recovered/Resolved]
  - Paraesthesia [Unknown]
  - Hypocalcaemia [Unknown]
  - Vision blurred [Unknown]
  - Headache [Unknown]
